FAERS Safety Report 10983106 (Version 1)
Quarter: 2015Q1

REPORT INFORMATION
  Report Type: Spontaneous
  Country: FR (occurrence: None)
  Receive Date: 20150302
  Receipt Date: 20150302
  Transmission Date: 20150721
  Serious: Yes (Other)
  Sender: FDA-Public Use
  Company Number: 2014SYM00117

PATIENT
  Age: 51 Year
  Sex: Male

DRUGS (5)
  1. LEVOTHYROX (LEVOTHRYOXINE SODIUM) [Concomitant]
  2. KARDEGIC (ACEYLSALICYLATE LYSINE) [Concomitant]
  3. CRESTOR [Concomitant]
     Active Substance: ROSUVASTATIN CALCIUM
  4. ACEON [Suspect]
     Active Substance: PERINDOPRIL ERBUMINE
     Indication: OFF LABEL USE
     Route: 048
     Dates: start: 2009, end: 20131129
  5. ACEON [Suspect]
     Active Substance: PERINDOPRIL ERBUMINE
     Indication: CEREBROVASCULAR ACCIDENT
     Route: 048
     Dates: start: 2009, end: 20131129

REACTIONS (1)
  - Thrombocytopenia [None]

NARRATIVE: CASE EVENT DATE: 20131129
